FAERS Safety Report 4539814-6 (Version None)
Quarter: 2004Q4

REPORT INFORMATION
  Report Type: 
  Country: None (occurrence: None)
  Receive Date: 20041222
  Receipt Date: 20041207
  Transmission Date: 20050328
  Serious: Yes (Hospitalization)
  Sender: FDA-Public Use
  Company Number: US_990725110

PATIENT
  Age: 48 Year
  Sex: Female
  Weight: 47 kg

DRUGS (15)
  1. INSULIN [Suspect]
  2. HUMULIN N [Suspect]
     Indication: DIABETES MELLITUS
     Dosage: 18 U DAY
     Dates: end: 19990101
  3. HUMULIN R [Suspect]
     Dates: end: 19990101
  4. HUMALOG [Suspect]
     Dosage: 23 U DAY
     Dates: end: 19990101
  5. LANTUS [Concomitant]
  6. DIGOXIN [Concomitant]
  7. CORGARD [Concomitant]
  8. ASPIRIN [Concomitant]
  9. SYNTHROID [Concomitant]
  10. VITAMIN D [Concomitant]
  11. COMBIPATCH [Concomitant]
  12. LIPITOR [Concomitant]
  13. XANAX (ALPRAZOLAM DUM) [Concomitant]
  14. ACTONEL [Concomitant]
  15. PROTONIX [Concomitant]

REACTIONS (9)
  - BLOOD GLUCOSE FLUCTUATION [None]
  - CARDIAC DISORDER [None]
  - DIABETES MELLITUS INADEQUATE CONTROL [None]
  - GASTRIC DISORDER [None]
  - GASTROOESOPHAGEAL REFLUX DISEASE [None]
  - PHARMACEUTICAL PRODUCT COMPLAINT [None]
  - TREMOR [None]
  - WEIGHT DECREASED [None]
  - WEIGHT INCREASED [None]
